FAERS Safety Report 7027465-3 (Version None)
Quarter: 2010Q4

REPORT INFORMATION
  Report Type: 
  Country: None (occurrence: None)
  Receive Date: 20101001
  Receipt Date: 20101001
  Transmission Date: 20110411
  Serious: No
  Sender: FDA-Public Use
  Company Number: None

PATIENT
  Sex: Male
  Weight: 82.5547 kg

DRUGS (3)
  1. TAMSULOSIN HCL [Suspect]
     Indication: POLLAKIURIA
     Dosage: ONE CAPSULE ONE PER DAY PO
     Route: 048
     Dates: start: 20100805, end: 20100920
  2. TAMSULOSIN HCL [Suspect]
     Indication: PROSTATOMEGALY
     Dosage: ONE CAPSULE ONE PER DAY PO
     Route: 048
     Dates: start: 20100805, end: 20100920
  3. TAMSULOSIN HCL [Suspect]
     Indication: URINE FLOW DECREASED
     Dosage: ONE CAPSULE ONE PER DAY PO
     Route: 048
     Dates: start: 20100805, end: 20100920

REACTIONS (6)
  - DRUG INEFFECTIVE [None]
  - IMPAIRED WORK ABILITY [None]
  - POLLAKIURIA [None]
  - PRODUCT COUNTERFEIT [None]
  - PRODUCT SUBSTITUTION ISSUE [None]
  - URINARY INCONTINENCE [None]
